FAERS Safety Report 6769215-1 (Version None)
Quarter: 2010Q2

REPORT INFORMATION
  Report Type: 
  Country: None (occurrence: None)
  Receive Date: 20100604
  Receipt Date: 20100528
  Transmission Date: 20101027
  Serious: Yes (Hospitalization)
  Sender: FDA-Public Use
  Company Number: 2010SP030035

PATIENT
  Age: 45 Year
  Sex: Male

DRUGS (5)
  1. REMERON [Suspect]
     Indication: DEPRESSION
     Dosage: 15 MG;PO, 30 MG;PO, 90 MG;PO
     Route: 048
     Dates: start: 20100427, end: 20100506
  2. REMERON [Suspect]
     Indication: DEPRESSION
     Dosage: 15 MG;PO, 30 MG;PO, 90 MG;PO
     Route: 048
     Dates: start: 20100507
  3. REMERON [Suspect]
     Indication: DEPRESSION
     Dosage: 15 MG;PO, 30 MG;PO, 90 MG;PO
     Route: 048
     Dates: start: 20100512
  4. ETIZOLAM [Concomitant]
  5. MYSLEE [Concomitant]

REACTIONS (6)
  - ACTIVATION SYNDROME [None]
  - ALCOHOL USE [None]
  - CONFUSIONAL STATE [None]
  - DEPRESSED LEVEL OF CONSCIOUSNESS [None]
  - MEMORY IMPAIRMENT [None]
  - OVERDOSE [None]
